FAERS Safety Report 18891377 (Version 1)
Quarter: 2021Q1

REPORT INFORMATION
  Report Type: Spontaneous
  Country: US (occurrence: US)
  Receive Date: 20210215
  Receipt Date: 20210215
  Transmission Date: 20210420
  Serious: No
  Sender: FDA-Public Use
  Company Number: US-ASTRAZENECA-2021A018103

PATIENT
  Sex: Male
  Weight: 79.4 kg

DRUGS (1)
  1. BYDUREON BCISE [Suspect]
     Active Substance: EXENATIDE
     Indication: DIABETES MELLITUS
     Route: 058

REACTIONS (5)
  - Visual impairment [Recovered/Resolved]
  - Device use issue [Recovered/Resolved]
  - Glycosylated haemoglobin increased [Recovered/Resolved]
  - Intentional device misuse [Recovered/Resolved]
  - Device leakage [Unknown]
